FAERS Safety Report 4955239-3 (Version None)
Quarter: 2006Q1

REPORT INFORMATION
  Report Type: 
  Country: None (occurrence: None)
  Receive Date: 20060322
  Receipt Date: 20060313
  Transmission Date: 20060701
  Serious: Yes (Hospitalization, Other)
  Sender: FDA-Public Use
  Company Number: 163-20785-05030475

PATIENT
  Age: 69 Year
  Sex: Male
  Weight: 114.76 kg

DRUGS (13)
  1. THALOMID [Suspect]
     Indication: ACUTE MYELOID LEUKAEMIA
     Dosage: SEE IMAGE
     Route: 048
     Dates: start: 20050211, end: 20050217
  2. THALOMID [Suspect]
     Indication: ACUTE MYELOID LEUKAEMIA
     Dosage: SEE IMAGE
     Route: 048
     Dates: start: 20050218, end: 20050301
  3. FLUDARABINE PHOSPHATE [Suspect]
     Indication: ACUTE MYELOID LEUKAEMIA
     Dosage: 28 MG, OVER 30 SEC X5 DAYS, INTRAVENOUS
     Route: 042
     Dates: start: 20050211, end: 20050215
  4. CARBOPLATIN [Suspect]
     Indication: ACUTE MYELOID LEUKAEMIA
     Dosage: 235 MG, OVER 24 SEC X5 DAYS, INTRAVENOUS
     Route: 042
     Dates: start: 20050211, end: 20050215
  5. TOPOTECAN (TOPOTECAN)  (INJECTION) [Suspect]
     Indication: ACUTE MYELOID LEUKAEMIA
     Dosage: 1.6 MG, OVER 24 HR X3 DOSES, INTRAVNEOUS
     Route: 042
     Dates: start: 20050211, end: 20050217
  6. TOPROL-XL [Concomitant]
  7. ALLOPURINOL [Concomitant]
  8. GEMFIBROZIL [Concomitant]
  9. ESTRADIOL [Concomitant]
  10. LANTUS INSULIN (INSULIN GLARGINE) (INJECTION) [Concomitant]
  11. HUMALOG INSULIN (INSULIN LISPRO) (INJECTION) [Concomitant]
  12. FOLIC ACID [Concomitant]
  13. MULTIVITAMIN [Concomitant]

REACTIONS (24)
  - ATELECTASIS [None]
  - BACTERAEMIA [None]
  - CATHETER SITE CELLULITIS [None]
  - CATHETER SITE ERYTHEMA [None]
  - CATHETER SITE PAIN [None]
  - CATHETER SITE RELATED REACTION [None]
  - CELLULITIS [None]
  - ERYTHEMA [None]
  - FEBRILE NEUTROPENIA [None]
  - HAEMATOCRIT DECREASED [None]
  - HAEMOGLOBIN DECREASED [None]
  - HYPOKALAEMIA [None]
  - HYPOMAGNESAEMIA [None]
  - LOCAL SWELLING [None]
  - NECK PAIN [None]
  - PANCYTOPENIA [None]
  - PLEURAL EFFUSION [None]
  - PNEUMONIA FUNGAL [None]
  - PULMONARY ALVEOLAR HAEMORRHAGE [None]
  - PULMONARY EMBOLISM [None]
  - RENAL FAILURE [None]
  - STAPHYLOCOCCAL INFECTION [None]
  - THROMBOPHLEBITIS [None]
  - THROMBOSIS [None]
